FAERS Safety Report 5940229-4 (Version None)
Quarter: 2008Q4

REPORT INFORMATION
  Report Type: 
  Country: None (occurrence: None)
  Receive Date: 20081104
  Receipt Date: 20081027
  Transmission Date: 20090506
  Serious: Yes (Hospitalization)
  Sender: FDA-Public Use
  Company Number: US-AMGEN-QUU315643

PATIENT
  Sex: Female

DRUGS (1)
  1. ENBREL [Suspect]
     Indication: RHEUMATOID ARTHRITIS
     Route: 058
     Dates: start: 19970901

REACTIONS (8)
  - CYSTITIS [None]
  - DIZZINESS [None]
  - HEART RATE INCREASED [None]
  - MYALGIA [None]
  - OSTEOARTHRITIS [None]
  - PAIN [None]
  - RENAL PAIN [None]
  - SINUSITIS [None]
